FAERS Safety Report 11534310 (Version 1)
Quarter: 2015Q3

REPORT INFORMATION
  Report Type: Report from Study
  Country: BR (occurrence: BR)
  Receive Date: 20150922
  Receipt Date: 20150922
  Transmission Date: 20151125
  Serious: Yes (Hospitalization, Other)
  Sender: FDA-Public Use
  Company Number: BR-ABBVIE-15K-020-1465333-00

PATIENT
  Sex: Male
  Weight: 67 kg

DRUGS (1)
  1. HUMIRA [Suspect]
     Active Substance: ADALIMUMAB
     Indication: ANKYLOSING SPONDYLITIS
     Route: 058
     Dates: end: 2013

REACTIONS (5)
  - Fatigue [Recovered/Resolved]
  - Urinary tract infection [Recovered/Resolved]
  - Tuberculosis [Recovered/Resolved]
  - Headache [Unknown]
  - Skin disorder [Unknown]

NARRATIVE: CASE EVENT DATE: 2012
